FAERS Safety Report 25054758 (Version 1)
Quarter: 2025Q1

REPORT INFORMATION
  Report Type: Spontaneous
  Country: GB (occurrence: GB)
  Receive Date: 20250308
  Receipt Date: 20250308
  Transmission Date: 20250409
  Serious: Yes (Other)
  Sender: TEVA
  Company Number: GB-MHRA-EMIS-177271-388b531a-47bf-48a2-8405-adefae5c3e40

PATIENT
  Age: 35 Year
  Sex: Female
  Weight: 70 kg

DRUGS (1)
  1. AMLODIPINE [Suspect]
     Active Substance: AMLODIPINE BESYLATE
     Indication: Product used for unknown indication
     Route: 065

REACTIONS (1)
  - Joint swelling [Recovering/Resolving]
